FAERS Safety Report 6077077-3 (Version None)
Quarter: 2009Q1

REPORT INFORMATION
  Report Type: 
  Country: None (occurrence: None)
  Receive Date: 20090211
  Receipt Date: 20090211
  Transmission Date: 20090719
  Serious: Yes (Other)
  Sender: FDA-Public Use
  Company Number: None

PATIENT
  Age: 37 Year
  Sex: Female
  Weight: 53.5244 kg

DRUGS (1)
  1. SINGULAIR [Suspect]
     Indication: ASTHMA
     Dosage: 5 MG ONCE A DAY PO
     Route: 048
     Dates: start: 19981112, end: 20080915

REACTIONS (7)
  - CONTUSION [None]
  - INCREASED TENDENCY TO BRUISE [None]
  - MENORRHAGIA [None]
  - OEDEMA PERIPHERAL [None]
  - PAIN [None]
  - PALPITATIONS [None]
  - VASCULAR RUPTURE [None]
